FAERS Safety Report 24573873 (Version 1)
Quarter: 2024Q4

REPORT INFORMATION
  Report Type: Spontaneous
  Country: ES (occurrence: ES)
  Receive Date: 20241104
  Receipt Date: 20241104
  Transmission Date: 20250114
  Serious: Yes (Other)
  Sender: Teyro Labs
  Company Number: ES-TEYRO-2024-TY-000833

PATIENT

DRUGS (5)
  1. CARBOPLATIN [Suspect]
     Active Substance: CARBOPLATIN
     Indication: Non-small cell lung cancer stage IIIA
     Dosage: AREA UNDER THE CURVE 6 MG/ML PER MIN
     Route: 042
  2. PACLITAXEL [Suspect]
     Active Substance: PACLITAXEL
     Indication: Non-small cell lung cancer stage IIIA
     Dosage: UNKNOWN
     Route: 042
  3. NIVOLUMAB [Suspect]
     Active Substance: NIVOLUMAB
     Indication: Non-small cell lung cancer stage IIIA
     Dosage: EVERY 3 WEEKS FOR THREE CYCLES
     Route: 065
  4. NIVOLUMAB [Suspect]
     Active Substance: NIVOLUMAB
     Dosage: EVERY 2 WEEKS FOR 4 MONTHS FOR 1 YEAR
     Route: 042
  5. NIVOLUMAB [Suspect]
     Active Substance: NIVOLUMAB
     Dosage: EVERY 4 WEEKS FOR 8 MONTHS
     Route: 042

REACTIONS (3)
  - Neoplasm progression [Unknown]
  - Therapy partial responder [Unknown]
  - Off label use [Unknown]
